FAERS Safety Report 9283726 (Version 2)
Quarter: 2013Q3

REPORT INFORMATION
  Report Type: Spontaneous
  Country: US (occurrence: None)
  Receive Date: 20130508
  Receipt Date: 20130808
  Transmission Date: 20140515
  Serious: Yes (Death)
  Sender: FDA-Public Use
  Company Number: ACO_35755_2013

PATIENT
  Age: 57 Year
  Sex: Female

DRUGS (6)
  1. AMPYRA (DALFAMPRIDINE) TABLET, 10MG [Suspect]
     Indication: PRODUCT USED FOR UNKNOWN INDICATION
     Dosage: 10 MG, BID
     Route: 048
     Dates: start: 201103
  2. BETASERON (INTERFERON BETA-1B) [Concomitant]
  3. SOLUMEDROL (METHYLPREDNISOLONE SODIUM SUCCINATE) [Concomitant]
  4. DITROPAN (OXYBUTYNIN HYDROCHLORIDE) [Concomitant]
  5. EFFEXOR-XR (VENLAFAXINE HYDROCHLORIDE) [Concomitant]
  6. GABAPENTIN (GABAPENTIN) [Concomitant]

REACTIONS (1)
  - Death [None]
